FAERS Safety Report 25897196 (Version 2)
Quarter: 2025Q4

REPORT INFORMATION
  Report Type: Spontaneous
  Country: SG (occurrence: SG)
  Receive Date: 20251008
  Receipt Date: 20251014
  Transmission Date: 20260118
  Serious: Yes (Hospitalization, Other)
  Sender: SANOFI AVENTIS
  Company Number: SG-DialogSolutions-SAAVPROD-PI827064-C1

PATIENT
  Age: 75 Year
  Sex: Female

DRUGS (5)
  1. DOCETAXEL [Suspect]
     Active Substance: DOCETAXEL
     Indication: Breast cancer stage III
     Dosage: UNK
     Dates: start: 202405
  2. PERTUZUMAB [Concomitant]
     Active Substance: PERTUZUMAB
     Indication: Breast cancer stage III
     Dosage: UNK
     Dates: start: 202405
  3. TRASTUZUMAB [Concomitant]
     Active Substance: TRASTUZUMAB
     Indication: Breast cancer stage III
     Dosage: UNK
     Dates: start: 202405
  4. FILGRASTIM [Concomitant]
     Active Substance: FILGRASTIM
     Dosage: UNK
     Dates: start: 202405
  5. HALOPERIDOL [Concomitant]
     Active Substance: HALOPERIDOL
     Indication: Schizophrenia
     Dates: start: 1994

REACTIONS (15)
  - Catatonia [Recovered/Resolved]
  - Delirium [Recovered/Resolved]
  - Disturbance in attention [Recovered/Resolved]
  - Stupor [Recovered/Resolved]
  - Staring [Recovered/Resolved]
  - Echolalia [Recovered/Resolved]
  - Stereotypy [Recovered/Resolved]
  - Verbigeration [Recovered/Resolved]
  - Waxy flexibility [Recovered/Resolved]
  - Perseveration [Recovered/Resolved]
  - Metabolic acidosis [Recovered/Resolved]
  - Hypophagia [Recovered/Resolved]
  - Vomiting [Recovered/Resolved]
  - Somnolence [Recovered/Resolved]
  - Acute kidney injury [Recovered/Resolved]

NARRATIVE: CASE EVENT DATE: 20240101
